FAERS Safety Report 20258539 (Version 2)
Quarter: 2023Q1

REPORT INFORMATION
  Report Type: Spontaneous
  Country: DE (occurrence: DE)
  Receive Date: 20211230
  Receipt Date: 20230207
  Transmission Date: 20230417
  Serious: Yes (Hospitalization)
  Sender: FDA-Public Use
  Company Number: DE-ADRED-05761-01

PATIENT
  Age: 62 Year
  Sex: Female
  Weight: 90 kg

DRUGS (12)
  1. GEMCITABINE [Suspect]
     Active Substance: GEMCITABINE
     Indication: Product used for unknown indication
     Dosage: UNK
     Route: 042
  2. CISPLATIN [Suspect]
     Active Substance: CISPLATIN
     Indication: Product used for unknown indication
     Dosage: UNK
     Route: 042
  3. ACETYLCYSTEINE [Concomitant]
     Active Substance: ACETYLCYSTEINE
     Dosage: 600 MG, 1-0-0-0, TABLETS
     Route: 048
  4. ENOXAPARIN SODIUM [Concomitant]
     Active Substance: ENOXAPARIN SODIUM
     Dosage: 0.8 ML, 1-0-1-0, PRE-FILLED SYRINGES
     Route: 058
  5. ONDANSETRON [Concomitant]
     Active Substance: ONDANSETRON
     Dosage: 4 MG AS NEEDED, TABLETS
     Route: 048
  6. DEXAMETHASONE [Concomitant]
     Active Substance: DEXAMETHASONE
     Dosage: 8 MG BY REGIMEN BY 03/13/2021 TABLETS
     Route: 048
  7. LEVOTHYROXINE SODIUM;POTASSIUM IODIDE [Concomitant]
     Dosage: 150|5 ?G, 1-0-0-0, TABLETS
     Route: 048
  8. OPIPRAMOL [Concomitant]
     Active Substance: OPIPRAMOL
     Dosage: 50 MG, 0-0-2-0, TABLETS
     Route: 048
  9. METAMIZOLE SODIUM [Concomitant]
     Active Substance: METAMIZOLE SODIUM
     Dosage: 500 MG, AS NEEDED, TABLETS
     Route: 048
  10. BISOPROLOL [Concomitant]
     Active Substance: BISOPROLOL
     Dosage: 5 MILLIGRAM (5 MG, 1-0-0-0, TABLETS)
     Route: 048
  11. APREPITANT [Concomitant]
     Active Substance: APREPITANT
     Dosage: 80 MG BY REGIMEN BY 12.03.2021 TABLETS
     Route: 048
  12. RAMIPRIL [Concomitant]
     Active Substance: RAMIPRIL
     Dosage: 5 MILLIGRAM (5 MG, 1-0-0-0, TABLETS)
     Route: 048

REACTIONS (6)
  - Tachycardia [Unknown]
  - Flank pain [Recovering/Resolving]
  - Malaise [Recovering/Resolving]
  - Hypotension [Recovering/Resolving]
  - Pyrexia [Unknown]
  - Urosepsis [Recovering/Resolving]
